FAERS Safety Report 7763159-4 (Version None)
Quarter: 2011Q3

REPORT INFORMATION
  Report Type: 
  Country: None (occurrence: None)
  Receive Date: 20110920
  Receipt Date: 20110912
  Transmission Date: 20111222
  Serious: Yes (Hospitalization)
  Sender: FDA-Public Use
  Company Number: PHHY2009CA44924

PATIENT
  Sex: Female

DRUGS (2)
  1. PRILOSEC [Concomitant]
     Dosage: UNK
  2. ZOLEDRONOC ACID [Suspect]
     Indication: OSTEOPOROSIS
     Dosage: UNK
     Dates: start: 20090910

REACTIONS (7)
  - PANCREATITIS [None]
  - LIPASE ABNORMAL [None]
  - TREMOR [None]
  - PERIPHERAL COLDNESS [None]
  - BODY TEMPERATURE INCREASED [None]
  - PAIN [None]
  - ABDOMINAL PAIN UPPER [None]
